FAERS Safety Report 20948896 (Version 1)
Quarter: 2022Q2

REPORT INFORMATION
  Report Type: Spontaneous
  Country: JP (occurrence: JP)
  Receive Date: 20220612
  Receipt Date: 20220612
  Transmission Date: 20220720
  Serious: Yes (Other)
  Sender: FDA-Public Use
  Company Number: JP-PFIZER INC-202200811834

PATIENT
  Sex: Female

DRUGS (1)
  1. ENBREL [Suspect]
     Active Substance: ETANERCEPT
     Indication: Product used for unknown indication
     Route: 058

REACTIONS (4)
  - Haemorrhage [Unknown]
  - Abdominal distension [Recovering/Resolving]
  - Balance disorder [Recovering/Resolving]
  - Injection site swelling [Recovering/Resolving]
